FAERS Safety Report 16083571 (Version 1)
Quarter: 2019Q1

REPORT INFORMATION
  Report Type: Spontaneous
  Country: US (occurrence: US)
  Receive Date: 20190214
  Receipt Date: 20190214
  Transmission Date: 20190418
  Serious: Yes (Hospitalization)
  Sender: FDA-Public Use
  Company Number: None

PATIENT
  Age: 24 Year
  Sex: Male
  Weight: 82.2 kg

DRUGS (9)
  1. FLUCONAZOLE. [Concomitant]
     Active Substance: FLUCONAZOLE
  2. MOXIFLOXACIN. [Concomitant]
     Active Substance: MOXIFLOXACIN
  3. CYTARABINE. [Suspect]
     Active Substance: CYTARABINE
     Dates: end: 20190111
  4. DAUNORUBICIN [Suspect]
     Active Substance: DAUNORUBICIN
     Dates: end: 20190125
  5. ALLOPURINOL. [Concomitant]
     Active Substance: ALLOPURINOL
  6. PREDNISONE. [Suspect]
     Active Substance: PREDNISONE
     Dates: end: 20190128
  7. VINCRISTINE SULFATE. [Suspect]
     Active Substance: VINCRISTINE SULFATE
     Dates: end: 20190125
  8. ONCASPAR [Suspect]
     Active Substance: PEGASPARGASE
     Dates: end: 20190115
  9. METHOTREXATE. [Suspect]
     Active Substance: METHOTREXATE
     Dates: end: 20190118

REACTIONS (7)
  - Aspartate aminotransferase increased [None]
  - Hypotension [None]
  - Blood fibrinogen increased [None]
  - Dehydration [None]
  - Blood bilirubin increased [None]
  - Liver function test increased [None]
  - Alanine aminotransferase increased [None]

NARRATIVE: CASE EVENT DATE: 20190130
